FAERS Safety Report 9870193 (Version 2)
Quarter: 2014Q1

REPORT INFORMATION
  Report Type: Spontaneous
  Country: US (occurrence: US)
  Receive Date: 20140205
  Receipt Date: 20140217
  Transmission Date: 20141002
  Serious: No
  Sender: FDA-Public Use
  Company Number: US-PFIZER INC-2014032693

PATIENT
  Age: 61 Year
  Sex: Male
  Weight: 113.38 kg

DRUGS (2)
  1. LYRICA [Suspect]
     Indication: DIABETIC NEUROPATHY
     Dosage: 150 MG, 3X/DAY
  2. LYRICA [Suspect]
     Dosage: 150 MG, 1X/DAY

REACTIONS (3)
  - Drug ineffective [Unknown]
  - Dysstasia [Unknown]
  - Somnolence [Unknown]
